FAERS Safety Report 4827868-9 (Version None)
Quarter: 2005Q4

REPORT INFORMATION
  Report Type: 
  Country: None (occurrence: None)
  Receive Date: 20051114
  Receipt Date: 20051114
  Transmission Date: 20060501
  Serious: No
  Sender: FDA-Public Use
  Company Number: None

PATIENT
  Age: 86 Year
  Sex: Male

DRUGS (2)
  1. IMMUNE GLOBULIN INTRAVENOUS (HUMAN) [Suspect]
     Dosage: INJECTABLE
  2. ACCU-CHEK COMFORT CURVE TEST STRIPS [Suspect]

REACTIONS (9)
  - AREFLEXIA [None]
  - BLOOD GLUCOSE FALSE POSITIVE [None]
  - BRAIN DAMAGE [None]
  - CORNEAL LIGHT REFLEX TEST ABNORMAL [None]
  - HYPOGLYCAEMIA [None]
  - HYPOTONIA [None]
  - LOSS OF CONSCIOUSNESS [None]
  - MEDICATION ERROR [None]
  - PUPIL FIXED [None]
